FAERS Safety Report 6429798-8 (Version None)
Quarter: 2009Q4

REPORT INFORMATION
  Report Type: 
  Country: None (occurrence: None)
  Receive Date: 20091106
  Receipt Date: 20091022
  Transmission Date: 20100525
  Serious: Yes (Other)
  Sender: FDA-Public Use
  Company Number: PHHY2009JP44986

PATIENT
  Age: 65 Year
  Sex: Male

DRUGS (3)
  1. GLEEVEC [Suspect]
     Indication: ACUTE LYMPHOCYTIC LEUKAEMIA
     Dosage: 800 MG, UNK
     Route: 048
  2. GLEEVEC [Suspect]
     Dosage: 400 MG, UNK
     Route: 048
  3. PREDNISOLONE [Concomitant]
     Dosage: 40 MG/M2, UNK

REACTIONS (2)
  - INTERSTITIAL LUNG DISEASE [None]
  - LIVER DISORDER [None]
